FAERS Safety Report 6156622-3 (Version None)
Quarter: 2009Q2

REPORT INFORMATION
  Report Type: 
  Country: None (occurrence: None)
  Receive Date: 20090416
  Receipt Date: 20090404
  Transmission Date: 20091009
  Serious: Yes (Hospitalization)
  Sender: FDA-Public Use
  Company Number: BR-ROCHE-627254

PATIENT
  Sex: Female

DRUGS (9)
  1. MYCOPHENOLATE MOFETIL [Suspect]
     Indication: RENAL TRANSPLANT
     Route: 065
     Dates: start: 20051003
  2. MYCOPHENOLATE MOFETIL [Suspect]
     Dosage: DOSE REDUCED.
     Route: 065
  3. MYCOPHENOLATE MOFETIL [Suspect]
     Dosage: DOSE INCREASED.
     Route: 065
     Dates: start: 20090212
  4. MYCOPHENOLATE MOFETIL [Suspect]
     Dosage: DOSE REDUCED.
     Route: 065
  5. MYCOPHENOLATE MOFETIL [Suspect]
     Dosage: DOSE REDUCED.
     Route: 065
     Dates: start: 20090402
  6. BELATACEPT [Suspect]
     Indication: RENAL TRANSPLANT
     Dosage: DRUG PERMANENTLY DISCONTINUED. DOSING REGIMEN BLINDED.
     Route: 042
     Dates: start: 20051003, end: 20081127
  7. PREDNISONE [Suspect]
     Indication: RENAL TRANSPLANT
     Route: 065
     Dates: start: 20051005
  8. PREDNISONE [Suspect]
     Route: 065
     Dates: start: 20090113
  9. SIROLIMUS [Concomitant]
     Dates: start: 20090402

REACTIONS (1)
  - BACTERAEMIA [None]
